FAERS Safety Report 6764350-6 (Version None)
Quarter: 2010Q2

REPORT INFORMATION
  Report Type: 
  Country: None (occurrence: None)
  Receive Date: 20100610
  Receipt Date: 20100531
  Transmission Date: 20101027
  Serious: Yes (Death, Other)
  Sender: FDA-Public Use
  Company Number: US-PFIZER INC-2010068621

PATIENT
  Age: 32 Year
  Sex: Male
  Weight: 388 kg

DRUGS (8)
  1. HEPARIN SODIUM [Suspect]
     Dosage: 5000 IU, SINGLE
     Route: 040
  2. HEPARIN SODIUM [Suspect]
     Dosage: 1500 IU/HOUR
     Route: 042
  3. HEPARIN SODIUM [Suspect]
     Dosage: 3000 IU/HOUR
     Route: 042
  4. HEPARIN SODIUM [Suspect]
     Dosage: 3650 IU/HOUR
     Route: 042
  5. HEPARIN SODIUM [Suspect]
     Dosage: 5000 IU, EVERY 8 HOURS
     Route: 058
  6. HEPARIN SODIUM [Suspect]
     Dosage: 10000 IU, SINGLE
     Route: 040
  7. HEPARIN SODIUM [Suspect]
     Dosage: 3000 IU/HOUR
     Route: 042
  8. HEPARIN SODIUM [Suspect]
     Dosage: 3550 IU/HOUR
     Route: 042

REACTIONS (5)
  - ELECTROMECHANICAL DISSOCIATION [None]
  - EMBOLISM VENOUS [None]
  - HAEMOPTYSIS [None]
  - HYPOTENSION [None]
  - HYPOXIA [None]
